FAERS Safety Report 4851987-4 (Version None)
Quarter: 2005Q4

REPORT INFORMATION
  Report Type: 
  Country: None (occurrence: None)
  Receive Date: 20051213
  Receipt Date: 20051129
  Transmission Date: 20060501
  Serious: Yes (Other)
  Sender: FDA-Public Use
  Company Number: PHBS2005GR17781

PATIENT
  Age: 49 Year
  Sex: Female

DRUGS (4)
  1. AREDIA [Suspect]
     Indication: MULTIPLE MYELOMA
     Dosage: 90 MG, EVERY 28 DAYS
     Dates: start: 19990801, end: 20040906
  2. ZOMETA [Suspect]
     Indication: MULTIPLE MYELOMA
     Dosage: 4 MG, EVERY 28 DAYS
     Dates: start: 19990801, end: 20040906
  3. DEXAMETHASONE [Concomitant]
     Route: 065
  4. THALIDOMIDE [Concomitant]
     Route: 065

REACTIONS (1)
  - OSTEONECROSIS [None]
